FAERS Safety Report 20232510 (Version 5)
Quarter: 2022Q1

REPORT INFORMATION
  Report Type: Report from Study
  Country: IL (occurrence: None)
  Receive Date: 20211227
  Receipt Date: 20220329
  Transmission Date: 20220423
  Serious: Yes (Hospitalization)
  Sender: FDA-Public Use
  Company Number: IL-ROCHE-2979254

PATIENT
  Age: 66 Year
  Sex: Female
  Weight: 65 kg

DRUGS (17)
  1. POLATUZUMAB VEDOTIN [Suspect]
     Active Substance: POLATUZUMAB VEDOTIN
     Indication: Diffuse large B-cell lymphoma
     Dosage: ON 07/DEC/2021 AT 12.30 PM SHE RECEIVED MOST RECENT DOSE (TOTAL VOLUME: 105.8 ML) OF POLATUZUMAB VED
     Route: 042
     Dates: start: 20211207
  2. OBINUTUZUMAB [Suspect]
     Active Substance: OBINUTUZUMAB
     Indication: Diffuse large B-cell lymphoma
     Dosage: TOTAL VOLUME PRIOR SAE 290 ML?ON 6/DEC/2021 AT 11. 50 AM SHE RECEIVED MOST RECENT DOSE OF OBINUTUZUM
     Route: 042
     Dates: start: 20211206, end: 20211206
  3. ACETAMINOPHEN [Concomitant]
     Active Substance: ACETAMINOPHEN
     Route: 048
     Dates: start: 20211206, end: 20211206
  4. ACETAMINOPHEN [Concomitant]
     Active Substance: ACETAMINOPHEN
     Route: 048
     Dates: start: 20211207, end: 20211207
  5. DEXAMETHASONE [Concomitant]
     Active Substance: DEXAMETHASONE
     Route: 042
     Dates: start: 20211207, end: 20211207
  6. DEXAMETHASONE [Concomitant]
     Active Substance: DEXAMETHASONE
     Route: 042
     Dates: start: 20211206, end: 20211206
  7. PROMETHAZINE [Concomitant]
     Active Substance: PROMETHAZINE HYDROCHLORIDE
     Route: 048
     Dates: start: 20211206, end: 20211206
  8. PROMETHAZINE [Concomitant]
     Active Substance: PROMETHAZINE HYDROCHLORIDE
     Route: 048
     Dates: start: 20211207, end: 20211207
  9. PREDNISONE [Concomitant]
     Active Substance: PREDNISONE
     Dates: start: 20211128, end: 20211205
  10. OMEPRAZOLE [Concomitant]
     Active Substance: OMEPRAZOLE
     Indication: Supportive care
     Dates: start: 20211128, end: 20211205
  11. NEUPOGEN [Concomitant]
     Active Substance: FILGRASTIM
     Indication: Neutropenia
     Dates: start: 20211129, end: 20211201
  12. ALLOPURINOL [Concomitant]
     Active Substance: ALLOPURINOL
     Dates: start: 20211202
  13. IRRADIATED PLATELETS [Concomitant]
     Indication: Thrombocytopenia
     Route: 042
     Dates: start: 20211210, end: 20211210
  14. IRRADIATED PLATELETS [Concomitant]
     Indication: Syncope
     Dates: start: 20211212, end: 20211212
  15. MAGNESIUM SULFATE [Concomitant]
     Active Substance: MAGNESIUM SULFATE
     Indication: Hypomagnesaemia
     Route: 042
     Dates: start: 20211210, end: 20211210
  16. MAGNESIUM SULFATE [Concomitant]
     Active Substance: MAGNESIUM SULFATE
     Indication: Syncope
  17. PANTOPRAZOLE [Concomitant]
     Active Substance: PANTOPRAZOLE
     Indication: Supportive care
     Dates: start: 20211210, end: 20211211

REACTIONS (1)
  - Syncope [Recovered/Resolved]

NARRATIVE: CASE EVENT DATE: 20211209
